FAERS Safety Report 7786489-9 (Version None)
Quarter: 2011Q3

REPORT INFORMATION
  Report Type: 
  Country: None (occurrence: None)
  Receive Date: 20110929
  Receipt Date: 20110919
  Transmission Date: 20111222
  Serious: Yes (Hospitalization)
  Sender: FDA-Public Use
  Company Number: TW-PFIZER INC-2011209833

PATIENT
  Age: 47 Year
  Sex: Female
  Weight: 36 kg

DRUGS (23)
  1. NEOMYCIN SULFATE [Concomitant]
  2. ALPRAZOLAM [Concomitant]
     Indication: INSOMNIA
     Dosage: UNK
     Dates: start: 20110804, end: 20110804
  3. COUGH MIXTURE A [Concomitant]
     Indication: DRY THROAT
  4. IRINOTECAN HCL [Suspect]
     Indication: COLORECTAL CANCER METASTATIC
     Dosage: 180 MG/M2, DAY 1 EVERY 14 DAYS
     Route: 042
     Dates: start: 20110608, end: 20110725
  5. PARACETAMOL [Concomitant]
     Indication: ALLERGY PROPHYLAXIS
  6. FLUOROURACIL [Suspect]
     Dosage: 2400 MG/M2, CYCLIC, ON DAYS 1 AND 2 EVERY 14 DAYS
     Route: 042
     Dates: start: 20110608, end: 20110725
  7. CEFUROXIME [Concomitant]
     Indication: ANTIBIOTIC PROPHYLAXIS
     Dosage: UNK
     Dates: start: 20110801, end: 20110807
  8. SINOMIN [Concomitant]
  9. TRAMADOL [Concomitant]
  10. DICLOFENAC SODIUM [Concomitant]
     Indication: ALLERGY PROPHYLAXIS
     Dosage: UNK
     Dates: start: 20110804, end: 20110804
  11. DURATEARS [Concomitant]
  12. BLINDED THERAPY [Suspect]
     Indication: COLORECTAL CANCER METASTATIC
     Dosage: UNK
     Dates: start: 20110608, end: 20110725
  13. VITAMIN B COMPLEX CAP [Concomitant]
     Indication: SUPPLEMENTATION THERAPY
  14. LEUCOVORIN CALCIUM [Suspect]
     Indication: COLORECTAL CANCER METASTATIC
     Dosage: 400 MG/M2, CYCLIC, DAY 1 EVERY 14 DAYS
     Route: 042
     Dates: start: 20110608, end: 20110725
  15. TRIAMCINOLONE [Concomitant]
     Indication: ALLERGY PROPHYLAXIS
  16. PYRIDOXINE HYDROCHLORIDE [Concomitant]
     Dosage: UNK
     Dates: start: 20110804, end: 20110804
  17. GRAMICIDIN [Concomitant]
  18. NYSTATIN [Concomitant]
     Indication: DRY THROAT
  19. FLUOROURACIL [Suspect]
     Indication: COLORECTAL CANCER METASTATIC
     Dosage: 400 MG/M2, DAY 1 EVERY 14 DAYS
     Route: 040
     Dates: start: 20110608, end: 20110725
  20. ACETAMINOPHEN [Concomitant]
     Indication: ALLERGY PROPHYLAXIS
  21. ASCORBIC ACID [Concomitant]
     Indication: SUPPLEMENTATION THERAPY
  22. TRIAMCINOLONE ACETONIDE [Concomitant]
  23. LEVOCETIRIZINE [Concomitant]
     Indication: RHINITIS ALLERGIC
     Dosage: UNK
     Dates: start: 20110804, end: 20110804

REACTIONS (4)
  - MASTOIDITIS [None]
  - MUCOSAL INFLAMMATION [None]
  - SINUSITIS [None]
  - FEBRILE NEUTROPENIA [None]
